FAERS Safety Report 8059994-8 (Version None)
Quarter: 2012Q1

REPORT INFORMATION
  Report Type: 
  Country: None (occurrence: None)
  Receive Date: 20120120
  Receipt Date: 20120109
  Transmission Date: 20120608
  Serious: Yes (Hospitalization)
  Sender: FDA-Public Use
  Company Number: US-BAYER-2011-038947

PATIENT
  Age: 16 Year
  Sex: Female
  Weight: 90.703 kg

DRUGS (5)
  1. YAZ [Suspect]
     Dosage: UNK
     Dates: start: 20050901, end: 20080101
  2. IBUPROFEN [Concomitant]
     Dosage: UNK
     Dates: start: 19920101, end: 20110101
  3. ANTIBIOTICS [Concomitant]
     Dosage: UNK
     Dates: start: 19920101, end: 20110101
  4. YASMIN [Suspect]
     Dosage: UNK
     Dates: start: 20050901, end: 20080101
  5. DEPO-PROVERA [Concomitant]

REACTIONS (7)
  - PAIN [None]
  - QUALITY OF LIFE DECREASED [None]
  - ANHEDONIA [None]
  - ANXIETY [None]
  - CHOLECYSTITIS CHRONIC [None]
  - GALLBLADDER DISORDER [None]
  - FEAR [None]
